FAERS Safety Report 9734076 (Version 1)
Quarter: 2013Q4

REPORT INFORMATION
  Report Type: Spontaneous
  Country: US (occurrence: US)
  Receive Date: 20131205
  Receipt Date: 20131205
  Transmission Date: 20140711
  Serious: No
  Sender: FDA-Public Use
  Company Number: US-BAYER-2013-147537

PATIENT
  Age: 35 Year
  Sex: Female

DRUGS (2)
  1. BEYAZ [Suspect]
     Indication: OVARIAN CYST
     Dosage: UNK
  2. YAZ [Suspect]
     Dosage: UNK

REACTIONS (1)
  - Thrombophlebitis superficial [None]
